FAERS Safety Report 20534185 (Version 1)
Quarter: 2022Q1

REPORT INFORMATION
  Report Type: Spontaneous
  Country: CA (occurrence: CA)
  Receive Date: 20220301
  Receipt Date: 20220301
  Transmission Date: 20220423
  Serious: Yes (Other)
  Sender: FDA-Public Use
  Company Number: CA-SAMSUNG BIOEPIS-SB-2022-04721

PATIENT
  Age: 57 Year
  Sex: Female

DRUGS (1)
  1. INFLIXIMAB [Suspect]
     Active Substance: INFLIXIMAB
     Indication: Crohn^s disease
     Route: 042

REACTIONS (7)
  - Blister [Unknown]
  - Drug hypersensitivity [Unknown]
  - Flushing [Unknown]
  - Palmoplantar pustulosis [Unknown]
  - Rash [Unknown]
  - Rash pruritic [Unknown]
  - Off label use [Unknown]
